FAERS Safety Report 4634363-9 (Version None)
Quarter: 2005Q2

REPORT INFORMATION
  Report Type: 
  Country: None (occurrence: None)
  Receive Date: 20050411
  Receipt Date: 20041216
  Transmission Date: 20051028
  Serious: Yes (Other)
  Sender: FDA-Public Use
  Company Number: 2005015133

PATIENT
  Age: 13 Year
  Sex: Male

DRUGS (1)
  1. GENOTROPIN [Suspect]
     Indication: ILL-DEFINED DISORDER
     Dosage: 1.2 MG, 6 DAYS A WEEK, SUBCUTANEOUS
     Route: 058
     Dates: start: 20011015

REACTIONS (2)
  - HEPATOMEGALY [None]
  - LIVER DISORDER [None]
